FAERS Safety Report 20952320 (Version 1)
Quarter: 2022Q2

REPORT INFORMATION
  Report Type: Spontaneous
  Country: US (occurrence: None)
  Receive Date: 20220612
  Receipt Date: 20220612
  Transmission Date: 20220720
  Serious: No
  Sender: FDA-Public Use
  Company Number: None

PATIENT

DRUGS (1)
  1. IRON [Suspect]
     Active Substance: IRON
     Route: 042

REACTIONS (4)
  - Catheter site discolouration [None]
  - Catheter site pain [None]
  - Wrong technique in device usage process [None]
  - Poor venous access [None]
